FAERS Safety Report 8218992-1 (Version None)
Quarter: 2012Q1

REPORT INFORMATION
  Report Type: 
  Country: None (occurrence: None)
  Receive Date: 20120319
  Receipt Date: 20120314
  Transmission Date: 20120608
  Serious: Yes (Hospitalization)
  Sender: FDA-Public Use
  Company Number: FR-MERCK-1203FRA00037

PATIENT
  Age: 68 Year
  Sex: Female

DRUGS (3)
  1. FOSAMAX PLUS D [Suspect]
     Indication: OSTEOPOROSIS
     Route: 065
     Dates: start: 20080101
  2. BROMAZEPAM [Concomitant]
     Route: 065
  3. BISOPROLOL FUMARATE [Concomitant]
     Route: 065

REACTIONS (1)
  - ATRIAL FIBRILLATION [None]
